FAERS Safety Report 6912075-6 (Version None)
Quarter: 2010Q3

REPORT INFORMATION
  Report Type: 
  Country: None (occurrence: None)
  Receive Date: 20100806
  Receipt Date: 20071101
  Transmission Date: 20110219
  Serious: No
  Sender: FDA-Public Use
  Company Number: US-PFIZER INC-2007092165

PATIENT
  Sex: Female

DRUGS (1)
  1. DETROL LA [Suspect]
     Dates: start: 20071031

REACTIONS (1)
  - HEADACHE [None]
